FAERS Safety Report 9475152 (Version 1)
Quarter: 2013Q3

REPORT INFORMATION
  Report Type: Spontaneous
  Country: FI (occurrence: FI)
  Receive Date: 20130824
  Receipt Date: 20130824
  Transmission Date: 20140515
  Serious: Yes (Other)
  Sender: FDA-Public Use
  Company Number: FI-ROCHE-1264477

PATIENT
  Age: 44 Year
  Sex: Male

DRUGS (12)
  1. RITUXIMAB [Suspect]
     Indication: CENTRAL NERVOUS SYSTEM LYMPHOMA
     Dosage: CYCLICALLY EVERY FOUR WEEKS WITH TWO-DAY TREATMENT PERIOD
     Route: 065
     Dates: start: 2007, end: 2007
  2. CARBOPLATIN [Suspect]
     Indication: CENTRAL NERVOUS SYSTEM LYMPHOMA
     Dosage: CYCLICALLY EVERY FOUR WEEKS WITH TWO-DAY TREATMENT PERIOD
     Route: 013
     Dates: start: 2007, end: 2007
  3. ETOPOSIDE [Suspect]
     Indication: CENTRAL NERVOUS SYSTEM LYMPHOMA
     Dosage: CYCLICALLY EVERY FOUR WEEKS WITH TWO-DAY TREATMENT PERIOD
     Route: 042
     Dates: start: 2007, end: 2007
  4. CYCLOPHOSPHAMIDE [Suspect]
     Indication: CENTRAL NERVOUS SYSTEM LYMPHOMA
     Dosage: CYCLICALLY EVERY FOUR WEEKS WITH TWO-DAY TREATMENT PERIOD
     Route: 042
     Dates: start: 2007, end: 2007
  5. DIAZEPAM [Concomitant]
     Route: 065
     Dates: start: 2007, end: 2007
  6. HYDROCORTISONE [Concomitant]
     Route: 065
     Dates: start: 2007, end: 2007
  7. PHENOBARBITAL [Concomitant]
     Route: 042
     Dates: start: 2007, end: 2007
  8. MANNITOL [Concomitant]
     Route: 013
     Dates: start: 2007, end: 2007
  9. METHOTREXATE [Concomitant]
     Route: 031
     Dates: start: 2007, end: 2007
  10. PROPOFOL [Concomitant]
     Indication: ANAESTHESIA
     Route: 065
     Dates: start: 2007, end: 2007
  11. THIOPENTAL [Concomitant]
     Route: 065
     Dates: start: 2007, end: 2007
  12. ATROPINE [Concomitant]
     Route: 065
     Dates: start: 2007, end: 2007

REACTIONS (2)
  - Subdural effusion [Recovered/Resolved]
  - Sinusitis [Unknown]
